FAERS Safety Report 5335626-4 (Version None)
Quarter: 2007Q2

REPORT INFORMATION
  Report Type: 
  Country: None (occurrence: None)
  Receive Date: 20070322
  Receipt Date: 20070126
  Transmission Date: 20071010
  Serious: No
  Sender: FDA-Public Use
  Company Number: 2007US000222

PATIENT
  Age: 82 Year
  Sex: Male

DRUGS (7)
  1. VESICARE [Suspect]
     Indication: HYPERTONIC BLADDER
     Dosage: 10 MG, ORAL
     Route: 048
  2. SERTRALINE [Concomitant]
  3. LYRICA [Concomitant]
  4. LABETALOL HCL [Concomitant]
  5. COZAAR [Concomitant]
  6. ARICEPT [Concomitant]
  7. CELEBREX [Concomitant]

REACTIONS (3)
  - DRUG INEFFECTIVE [None]
  - INCONTINENCE [None]
  - NOCTURIA [None]
